FAERS Safety Report 8828250 (Version 1)
Quarter: 2012Q4

REPORT INFORMATION
  Report Type: 
  Country: AU (occurrence: AU)
  Receive Date: 20121008
  Receipt Date: 20121008
  Transmission Date: 20130627
  Serious: Yes (Other)
  Sender: FDA-Public Use
  Company Number: PHHY2012AU087235

PATIENT
  Age: 37 Year
  Sex: Male

DRUGS (1)
  1. CLOZARIL [Suspect]
     Dosage: 100 mg
     Dates: start: 20090825, end: 20120929

REACTIONS (2)
  - Sleep apnoea syndrome [Unknown]
  - Salivary hypersecretion [Unknown]
